FAERS Safety Report 13583832 (Version 1)
Quarter: 2017Q2

REPORT INFORMATION
  Report Type: Spontaneous
  Country: US (occurrence: US)
  Receive Date: 20170526
  Receipt Date: 20170526
  Transmission Date: 20170830
  Serious: Yes (Hospitalization, Other)
  Sender: FDA-Public Use
  Company Number: US-SHIRE-US201711308

PATIENT
  Age: 14 Year
  Sex: Male

DRUGS (3)
  1. VSL 3 [Concomitant]
     Active Substance: PROBIOTICS NOS
     Indication: PRODUCT USED FOR UNKNOWN INDICATION
     Dosage: UNK, UNKNOWN
     Route: 065
  2. 476 (MESALAZINE/MESALAMINE) [Suspect]
     Active Substance: MESALAMINE
     Indication: COLITIS ULCERATIVE
     Dosage: UNK, UNKNOWN
     Route: 048
  3. 476 (MESALAZINE/MESALAMINE) [Suspect]
     Active Substance: MESALAMINE
     Dosage: 4.8 G, UNKNOWN
     Route: 048

REACTIONS (3)
  - Haematochezia [Recovering/Resolving]
  - Immune thrombocytopenic purpura [Recovering/Resolving]
  - Product use issue [Not Recovered/Not Resolved]
